FAERS Safety Report 16880937 (Version 1)
Quarter: 2019Q4

REPORT INFORMATION
  Report Type: Spontaneous
  Country: US (occurrence: US)
  Receive Date: 20191003
  Receipt Date: 20191003
  Transmission Date: 20200122
  Serious: Yes (Hospitalization)
  Sender: FDA-Public Use
  Company Number: None

PATIENT
  Age: 63 Year
  Sex: Female
  Weight: 75 kg

DRUGS (3)
  1. YESCARTA [Suspect]
     Active Substance: AXICABTAGENE CILOLEUCEL
     Indication: DIFFUSE LARGE B-CELL LYMPHOMA
     Dosage: ?          OTHER FREQUENCY:OTHER;?
     Route: 040
     Dates: start: 20190619, end: 20190619
  2. DEXAMETHASONE. [Concomitant]
     Active Substance: DEXAMETHASONE
     Dates: start: 20190625, end: 20190716
  3. TOCILUZUMAB [Concomitant]
     Dates: start: 20190624, end: 20190626

REACTIONS (12)
  - Cytokine release syndrome [None]
  - Fluid retention [None]
  - Haemodialysis [None]
  - Gastrostomy tube site complication [None]
  - Neurotoxicity [None]
  - Deep vein thrombosis [None]
  - Soft tissue haemorrhage [None]
  - Pneumoperitoneum [None]
  - Renal replacement therapy [None]
  - Nephropathy toxic [None]
  - Encephalopathy [None]
  - Cerebral disorder [None]

NARRATIVE: CASE EVENT DATE: 20190620
